FAERS Safety Report 10987440 (Version 2)
Quarter: 2015Q2

REPORT INFORMATION
  Report Type: Spontaneous
  Country: US (occurrence: US)
  Receive Date: 20150404
  Receipt Date: 20150525
  Transmission Date: 20150821
  Serious: Yes (Hospitalization, Other)
  Sender: FDA-Public Use
  Company Number: US-JNJFOC-20140420057

PATIENT
  Age: 70 Year
  Sex: Male

DRUGS (2)
  1. INFLIXIMAB, RECOMBINANT [Suspect]
     Active Substance: INFLIXIMAB
     Indication: CROHN^S DISEASE
     Route: 042
  2. STEROIDS NOS [Suspect]
     Active Substance: UNSPECIFIED INGREDIENT
     Indication: CROHN^S DISEASE
     Route: 065

REACTIONS (6)
  - Brain abscess [Recovered/Resolved]
  - Spinal cord abscess [Recovered/Resolved]
  - Sinusitis [Recovered/Resolved]
  - Liver abscess [Recovered/Resolved]
  - Upper respiratory tract infection [Recovered/Resolved]
  - Adverse drug reaction [Unknown]
